FAERS Safety Report 21333122 (Version 1)
Quarter: 2022Q3

REPORT INFORMATION
  Report Type: Spontaneous
  Country: JP (occurrence: JP)
  Receive Date: 20220914
  Receipt Date: 20220914
  Transmission Date: 20221027
  Serious: Yes (Hospitalization)
  Sender: FDA-Public Use
  Company Number: JP-MYE-2022M1093056AA

PATIENT
  Age: 14 Month
  Sex: Female

DRUGS (6)
  1. CYCLOSPORINE [Suspect]
     Active Substance: CYCLOSPORINE
     Indication: Kawasaki^s disease
     Dosage: 4 MILLIGRAM/KILOGRAM, QD
     Route: 048
  2. ASPIRIN [Suspect]
     Active Substance: ASPIRIN
     Indication: Kawasaki^s disease
     Dosage: 30 MILLIGRAM/KILOGRAM, QD
     Route: 048
  3. INFLIXIMAB [Suspect]
     Active Substance: INFLIXIMAB
     Indication: Kawasaki^s disease
     Dosage: 5 MILLIGRAM/KILOGRAM, SINGLE DOSE
     Route: 065
  4. PRIVIGEN [Concomitant]
     Active Substance: HUMAN IMMUNOGLOBULIN G
     Indication: Kawasaki^s disease
     Dosage: QD, 2G/KG/DOSE, SINGLE DOSE
     Route: 042
  5. ULINASTATIN [Concomitant]
     Active Substance: ULINASTATIN
     Indication: Kawasaki^s disease
     Dosage: UNK
     Route: 065
  6. CEFOTAXIME [Concomitant]
     Active Substance: CEFOTAXIME SODIUM
     Indication: Respiratory tract infection
     Dosage: 150 MILLIGRAM/KILOGRAM, QD, FOR 5 DAYS
     Route: 065

REACTIONS (3)
  - Aspergillus infection [Recovered/Resolved]
  - Drug ineffective [Unknown]
  - Off label use [Unknown]
